FAERS Safety Report 9975413 (Version 1)
Quarter: 2014Q1

REPORT INFORMATION
  Report Type: Report from Study
  Country: US (occurrence: US)
  Receive Date: 20140306
  Receipt Date: 20140306
  Transmission Date: 20141002
  Serious: No
  Sender: FDA-Public Use
  Company Number: US-ABBVIE-13P-163-1155759-00

PATIENT
  Sex: Male

DRUGS (4)
  1. HUMIRA [Suspect]
     Indication: PSORIATIC ARTHROPATHY
     Dates: start: 201304
  2. GLUCOSAMINE + CHONDROITIN [Concomitant]
     Indication: SUPPLEMENTATION THERAPY
     Dosage: 1500 MG DAILY
  3. FISH OIL [Concomitant]
     Indication: SUPPLEMENTATION THERAPY
  4. ANTIBIOTICS [Concomitant]
     Indication: PRODUCT USED FOR UNKNOWN INDICATION

REACTIONS (1)
  - Ear infection [Not Recovered/Not Resolved]
